FAERS Safety Report 23615515 (Version 1)
Quarter: 2024Q1

REPORT INFORMATION
  Report Type: Spontaneous
  Country: US (occurrence: US)
  Receive Date: 20240311
  Receipt Date: 20240311
  Transmission Date: 20240410
  Serious: Yes (Life-Threatening, Hospitalization, Other)
  Sender: FDA-Public Use
  Company Number: US-CHEPLA-2024000735

PATIENT
  Age: 76 Year
  Sex: Male

DRUGS (8)
  1. CAPECITABINE [Suspect]
     Active Substance: CAPECITABINE
     Indication: Oesophageal carcinoma
     Dosage: BID DAYS 1, 15Q 21 DAYS?DAILY DOSE: 2000 MILLIGRAM/M?
     Route: 048
     Dates: start: 20230828, end: 20231030
  2. CAPECITABINE [Suspect]
     Active Substance: CAPECITABINE
     Indication: Oesophageal carcinoma
     Dosage: BID DAYS 1, 15Q 21 DAYS/ON 03-DEC-2023. HE RECEIVED A TOTAL OF 5 DOSES OF CAPECITABINE PRIOR TO S...
     Route: 048
     Dates: start: 20231125, end: 20231203
  3. OXALIPLATIN [Suspect]
     Active Substance: OXALIPLATIN
     Indication: Oesophageal carcinoma
     Dosage: DAY 1
     Route: 042
     Dates: start: 20230828, end: 20231030
  4. OXALIPLATIN [Suspect]
     Active Substance: OXALIPLATIN
     Indication: Oesophageal carcinoma
     Dosage: DAY 1
     Route: 042
     Dates: start: 20231030, end: 20231120
  5. TISLELIZUMAB [Suspect]
     Active Substance: TISLELIZUMAB
     Indication: Oesophageal carcinoma
     Dosage: TOTAL OF 6 DOSES OF TISLELIZUMAB PRIOR TO SAE ONSET. IN CYCLE 5
     Route: 042
     Dates: start: 20230828, end: 20231120
  6. TISLELIZUMAB [Suspect]
     Active Substance: TISLELIZUMAB
     Indication: Oesophageal carcinoma
     Route: 042
     Dates: start: 20240212
  7. SIREXATAMAB [Suspect]
     Active Substance: SIREXATAMAB
     Indication: Oesophageal carcinoma
     Dosage: CYCLE 5 DAY 1. TOTAL OF 6 DOSES OF DKN-01 PRIOR TO SAE ONSET
     Route: 042
     Dates: start: 20230828, end: 20231120
  8. SIREXATAMAB [Suspect]
     Active Substance: SIREXATAMAB
     Indication: Oesophageal carcinoma
     Route: 042
     Dates: start: 20240212

REACTIONS (3)
  - Hyponatraemia [Recovered/Resolved]
  - Syncope [Recovered/Resolved]
  - Adrenal insufficiency [Recovering/Resolving]

NARRATIVE: CASE EVENT DATE: 20240101
